FAERS Safety Report 13182273 (Version 1)
Quarter: 2017Q1

REPORT INFORMATION
  Report Type: Spontaneous
  Country: US (occurrence: US)
  Receive Date: 20170203
  Receipt Date: 20170203
  Transmission Date: 20170428
  Serious: No
  Sender: FDA-Public Use
  Company Number: US-ASTRAZENECA-2017SE09594

PATIENT
  Sex: Female
  Weight: 77.6 kg

DRUGS (1)
  1. BYDUREON [Suspect]
     Active Substance: EXENATIDE
     Indication: TYPE 2 DIABETES MELLITUS
     Route: 058
     Dates: start: 2014

REACTIONS (6)
  - Administration site pain [Unknown]
  - Device difficult to use [Unknown]
  - Intentional device use issue [Unknown]
  - Intentional device misuse [Unknown]
  - Intentional product misuse [Unknown]
  - Underdose [Unknown]
